FAERS Safety Report 8486053-2 (Version None)
Quarter: 2012Q3

REPORT INFORMATION
  Report Type: 
  Country: None (occurrence: None)
  Receive Date: 20120703
  Receipt Date: 20120622
  Transmission Date: 20120928
  Serious: Yes (Other)
  Sender: FDA-Public Use
  Company Number: US-BRISTOL-MYERS SQUIBB COMPANY-16706889

PATIENT
  Age: 75 Year
  Sex: Male
  Weight: 79 kg

DRUGS (7)
  1. METOPROLOL SUCCINATE [Suspect]
     Indication: ATRIAL FIBRILLATION
     Dates: start: 20110204
  2. ASPIRIN [Suspect]
     Indication: COAGULOPATHY
     Dates: start: 20120213
  3. TIKOSYN [Suspect]
     Indication: ATRIAL FIBRILLATION
     Dates: start: 20120213, end: 20120101
  4. AMLODIPINE BESYLATE [Suspect]
     Dates: start: 20110204, end: 20120101
  5. WARFARIN SODIUM [Suspect]
     Indication: COAGULOPATHY
     Dates: start: 20110204, end: 20120101
  6. TIKOSYN [Suspect]
     Indication: HEART RATE INCREASED
     Dates: start: 20120213, end: 20120101
  7. METOPROLOL SUCCINATE [Suspect]
     Indication: ARRHYTHMIA
     Dates: start: 20110204

REACTIONS (12)
  - PAIN IN EXTREMITY [None]
  - JOINT SWELLING [None]
  - DIZZINESS [None]
  - INSOMNIA [None]
  - DYSPEPSIA [None]
  - MUSCULOSKELETAL CHEST PAIN [None]
  - DYSPNOEA [None]
  - MENTAL IMPAIRMENT [None]
  - ASTHENIA [None]
  - MUSCULOSKELETAL PAIN [None]
  - GAIT DISTURBANCE [None]
  - BREAST PAIN [None]
